FAERS Safety Report 4450691-4 (Version None)
Quarter: 2004Q3

REPORT INFORMATION
  Report Type: 
  Country: None (occurrence: None)
  Receive Date: 20040915
  Receipt Date: 20040915
  Transmission Date: 20050211
  Serious: Yes (Other)
  Sender: FDA-Public Use
  Company Number: None

PATIENT
  Age: 54 Year
  Sex: Female
  Weight: 61.2356 kg

DRUGS (2)
  1. ZICAM   COLD REMEDY [Suspect]
     Indication: NASOPHARYNGITIS
     Dosage: ONCE  EVERY 4 HR  NASAL
     Route: 045
     Dates: start: 20030328, end: 20030401
  2. ZICAM   COLD REMEDY [Suspect]
     Indication: NASOPHARYNGITIS
     Dosage: ONCE  EVERY 4 HR  NASAL
     Route: 045
     Dates: start: 20040415, end: 20040416

REACTIONS (2)
  - DYSGEUSIA [None]
  - PAROSMIA [None]
